FAERS Safety Report 10929143 (Version 2)
Quarter: 2015Q2

REPORT INFORMATION
  Report Type: Spontaneous
  Country: US (occurrence: US)
  Receive Date: 20150319
  Receipt Date: 20150524
  Transmission Date: 20150821
  Serious: No
  Sender: FDA-Public Use
  Company Number: US-JNJFOC-20150114435

PATIENT
  Age: 7 Year
  Weight: 29.94 kg

DRUGS (4)
  1. CONCERTA [Suspect]
     Active Substance: METHYLPHENIDATE HYDROCHLORIDE
     Indication: ATTENTION DEFICIT/HYPERACTIVITY DISORDER
     Route: 048
     Dates: start: 20150115
  2. CONCERTA [Suspect]
     Active Substance: METHYLPHENIDATE HYDROCHLORIDE
     Indication: ATTENTION DEFICIT/HYPERACTIVITY DISORDER
     Route: 048
     Dates: start: 201303, end: 20150114
  3. CYCLO [Concomitant]
     Active Substance: CYCLOPHOSPHAMIDE
     Indication: GASTRIC DISORDER
     Route: 065
  4. FAMOTIDINE. [Concomitant]
     Active Substance: FAMOTIDINE
     Indication: GASTRIC DISORDER
     Route: 065

REACTIONS (3)
  - Dysphagia [Not Recovered/Not Resolved]
  - Intentional product misuse [Not Recovered/Not Resolved]
  - Abnormal behaviour [Unknown]

NARRATIVE: CASE EVENT DATE: 20150115
